FAERS Safety Report 4652971-6 (Version None)
Quarter: 2005Q2

REPORT INFORMATION
  Report Type: 
  Country: None (occurrence: None)
  Receive Date: 20050503
  Receipt Date: 20050422
  Transmission Date: 20051028
  Serious: Yes (Hospitalization)
  Sender: FDA-Public Use
  Company Number: 2005BI003140

PATIENT
  Age: 49 Year
  Sex: Male

DRUGS (13)
  1. NATALIZUMAB [Suspect]
     Indication: MULTIPLE SCLEROSIS
     Dosage: 300 MG;QM;IV
     Route: 042
     Dates: start: 20050203, end: 20050101
  2. LASIX [Concomitant]
  3. SPIRONOLACTONE [Concomitant]
  4. PROZAC [Concomitant]
  5. DIGITEK [Concomitant]
  6. KLOR-CON [Concomitant]
  7. BACLOFEN [Concomitant]
  8. DILANTIN [Concomitant]
  9. TRAZODONE [Concomitant]
  10. PROVIGIL [Concomitant]
  11. ALLEGRA [Concomitant]
  12. LESCOL [Concomitant]
  13. SOLU-MEDROL [Concomitant]

REACTIONS (3)
  - INFECTION [None]
  - PNEUMONIA [None]
  - URINARY TRACT INFECTION [None]
